FAERS Safety Report 13585653 (Version 1)
Quarter: 2017Q2

REPORT INFORMATION
  Report Type: Spontaneous
  Country: US (occurrence: US)
  Receive Date: 20170526
  Receipt Date: 20170526
  Transmission Date: 20170830
  Serious: Yes (Hospitalization)
  Sender: FDA-Public Use
  Company Number: US-LPDUSPRD-20170707

PATIENT
  Age: 28 Year
  Sex: Male

DRUGS (1)
  1. LEVETIRACETAM INJECTION (0517-3605-01) [Suspect]
     Active Substance: LEVETIRACETAM
     Dosage: 500 MG TWICE DAILY
     Route: 065

REACTIONS (6)
  - Hostility [Unknown]
  - Social avoidant behaviour [Unknown]
  - Depression [Unknown]
  - Impulse-control disorder [Unknown]
  - Suicidal ideation [Unknown]
  - Mood swings [Unknown]
